FAERS Safety Report 10218583 (Version 1)
Quarter: 2014Q2

REPORT INFORMATION
  Report Type: Spontaneous
  Country: US (occurrence: None)
  Receive Date: 20140604
  Receipt Date: 20140604
  Transmission Date: 20141212
  Serious: Yes (Other)
  Sender: FDA-Public Use
  Company Number: None

PATIENT
  Age: 47 Year
  Sex: Female
  Weight: 68.6 kg

DRUGS (2)
  1. FINGOLIMOD (GILENYA) [Suspect]
     Indication: MULTIPLE SCLEROSIS
     Route: 048
     Dates: start: 20140520
  2. LEXAPRO (OSCITALOPRAM) [Concomitant]

REACTIONS (1)
  - Heart rate increased [None]
